FAERS Safety Report 12404182 (Version 1)
Quarter: 2016Q2

REPORT INFORMATION
  Report Type: Spontaneous
  Country: GB (occurrence: GB)
  Receive Date: 20160525
  Receipt Date: 20160525
  Transmission Date: 20160815
  Serious: Yes (Other)
  Sender: FDA-Public Use
  Company Number: GB-PFIZER INC-2016267487

PATIENT
  Age: 47 Year
  Sex: Female
  Weight: 50 kg

DRUGS (2)
  1. GEODON [Suspect]
     Active Substance: ZIPRASIDONE HYDROCHLORIDE\ZIPRASIDONE MESYLATE
     Dosage: 80 MG, EVERY EVENING
     Route: 048
     Dates: start: 2008
  2. LUVOX [Concomitant]
     Active Substance: FLUVOXAMINE MALEATE
     Indication: OBSESSIVE-COMPULSIVE DISORDER
     Dosage: 100 MG, 3X/DAY EVERY EVENING
     Route: 048
     Dates: start: 201101

REACTIONS (3)
  - Optic nerve injury [Not Recovered/Not Resolved]
  - Burns second degree [Recovered/Resolved with Sequelae]
  - Photosensitivity reaction [Unknown]

NARRATIVE: CASE EVENT DATE: 20121216
